FAERS Safety Report 7756117-7 (Version None)
Quarter: 2011Q3

REPORT INFORMATION
  Report Type: 
  Country: None (occurrence: None)
  Receive Date: 20110916
  Receipt Date: 20101103
  Transmission Date: 20111222
  Serious: No
  Sender: FDA-Public Use
  Company Number: US-BAYER-201041173NA

PATIENT
  Sex: Female

DRUGS (1)
  1. MIRENA [Suspect]
     Indication: CONTRACEPTION
     Dosage: 20 ?G/D, CONT
     Route: 015
     Dates: start: 20091229, end: 20100701

REACTIONS (7)
  - PARAESTHESIA [None]
  - RASH [None]
  - ALOPECIA [None]
  - DEPRESSION [None]
  - MOOD SWINGS [None]
  - ANXIETY [None]
  - VAGINAL LESION [None]
